FAERS Safety Report 7107402-3 (Version None)
Quarter: 2010Q4

REPORT INFORMATION
  Report Type: 
  Country: None (occurrence: None)
  Receive Date: 20101111
  Receipt Date: 20101111
  Transmission Date: 20110411
  Serious: No
  Sender: FDA-Public Use
  Company Number: None

PATIENT
  Sex: Female
  Weight: 104.3273 kg

DRUGS (1)
  1. CYMBALTA [Suspect]

REACTIONS (12)
  - CRYING [None]
  - DRUG WITHDRAWAL SYNDROME [None]
  - HEADACHE [None]
  - HYPERHIDROSIS [None]
  - IRRITABILITY [None]
  - LOSS OF LIBIDO [None]
  - NAUSEA [None]
  - PHOTOPHOBIA [None]
  - SEXUAL DYSFUNCTION [None]
  - SUICIDAL IDEATION [None]
  - TREMOR [None]
  - VOMITING [None]
